FAERS Safety Report 19278626 (Version 2)
Quarter: 2021Q2

REPORT INFORMATION
  Report Type: Spontaneous
  Country: NZ (occurrence: NZ)
  Receive Date: 20210520
  Receipt Date: 20210628
  Transmission Date: 20210717
  Serious: Yes (Hospitalization)
  Sender: FDA-Public Use
  Company Number: NZ-MYLANLABS-2021M1029111

PATIENT
  Age: 21 Year
  Sex: Male

DRUGS (1)
  1. CLOZARIL [Suspect]
     Active Substance: CLOZAPINE
     Indication: SCHIZOPHRENIA
     Dosage: UNK
     Route: 048
     Dates: start: 20180118, end: 202104

REACTIONS (4)
  - Hepatic steatosis [Unknown]
  - Treatment noncompliance [Unknown]
  - Liver function test abnormal [Unknown]
  - Psychotic disorder [Unknown]

NARRATIVE: CASE EVENT DATE: 202104
